FAERS Safety Report 11390005 (Version 5)
Quarter: 2016Q2

REPORT INFORMATION
  Report Type: Spontaneous
  Country: CO (occurrence: CO)
  Receive Date: 20150818
  Receipt Date: 20160524
  Transmission Date: 20160815
  Serious: Yes (Death, Life-Threatening, Hospitalization, Other)
  Sender: FDA-Public Use
  Company Number: CO-009507513-1508COL006754

PATIENT
  Age: 43 Year
  Sex: Female

DRUGS (9)
  1. EMTRICITABINE [Concomitant]
     Active Substance: EMTRICITABINE
  2. ISENTRESS [Suspect]
     Active Substance: RALTEGRAVIR POTASSIUM
     Indication: HIV INFECTION
     Dosage: 800 MG, EVERY 12 HOURS
     Route: 048
     Dates: start: 201505, end: 20150806
  3. TRIMETHOPRIM SULFATE [Concomitant]
     Active Substance: TRIMETHOPRIM SULFATE
  4. TRUVADA [Suspect]
     Active Substance: EMTRICITABINE\TENOFOVIR DISOPROXIL FUMARATE
     Indication: HIV INFECTION
     Dosage: TOTAL DAILY DOSE:70 (UNITS NOT PROVIDED), QW
     Route: 048
     Dates: start: 201505, end: 20150803
  5. TRUVADA [Suspect]
     Active Substance: EMTRICITABINE\TENOFOVIR DISOPROXIL FUMARATE
     Dosage: UNK
     Dates: start: 20150819
  6. TENOFOVIR [Concomitant]
     Active Substance: TENOFOVIR
  7. ISENTRESS [Suspect]
     Active Substance: RALTEGRAVIR POTASSIUM
     Dosage: UNK
     Route: 048
     Dates: start: 20150819
  8. AZITHROMYCIN ANHYDROUS. [Concomitant]
     Active Substance: AZITHROMYCIN ANHYDROUS
  9. RIFAMPIN. [Concomitant]
     Active Substance: RIFAMPIN
     Indication: TUBERCULOSIS
     Dosage: UNK
     Route: 065
     Dates: start: 2015, end: 2015

REACTIONS (7)
  - Cardio-respiratory arrest [Fatal]
  - Cachexia [Fatal]
  - Meningitis bacterial [Recovered/Resolved]
  - General physical health deterioration [Unknown]
  - Toxicity to various agents [Recovered/Resolved]
  - Malnutrition [Fatal]
  - Decreased appetite [Unknown]

NARRATIVE: CASE EVENT DATE: 2015
